FAERS Safety Report 4932768-X (Version None)
Quarter: 2006Q1

REPORT INFORMATION
  Report Type: 
  Country: None (occurrence: None)
  Receive Date: 20060306
  Receipt Date: 20060217
  Transmission Date: 20060701
  Serious: Yes (Hospitalization, Other)
  Sender: FDA-Public Use
  Company Number: 2006UW02831

PATIENT
  Age: 85 Year
  Sex: Female

DRUGS (2)
  1. SEROQUEL [Suspect]
     Route: 048
  2. ANTI-HYPERTENSIVE MEDICATION [Concomitant]

REACTIONS (2)
  - CEREBROVASCULAR ACCIDENT [None]
  - WEIGHT INCREASED [None]
